FAERS Safety Report 5963388-6 (Version None)
Quarter: 2008Q4

REPORT INFORMATION
  Report Type: 
  Country: None (occurrence: None)
  Receive Date: 20081124
  Receipt Date: 20081120
  Transmission Date: 20090506
  Serious: Yes (Life-Threatening, Hospitalization)
  Sender: FDA-Public Use
  Company Number: B0546825A

PATIENT
  Age: 35 Year
  Sex: Female
  Weight: 54.5 kg

DRUGS (11)
  1. BLINDED VACCINE [Suspect]
     Route: 030
     Dates: start: 20061117, end: 20061117
  2. PAXIL [Suspect]
     Indication: DEPRESSION
     Dosage: 40MG PER DAY
     Route: 048
     Dates: start: 20080801
  3. LAMICTAL [Suspect]
     Indication: BIPOLAR DISORDER
     Dosage: 350MG PER DAY
     Route: 048
     Dates: start: 20080730
  4. EFFEXOR [Suspect]
     Indication: DEPRESSION
     Dosage: 300MG PER DAY
     Route: 048
     Dates: start: 20060628
  5. CHANTIX [Suspect]
     Dosage: 1MG PER DAY
     Route: 048
     Dates: start: 20070423
  6. KLONOPIN [Suspect]
     Indication: ANXIETY
     Dosage: 5MG AS REQUIRED
     Route: 048
     Dates: start: 20071101
  7. RISPERDAL [Suspect]
     Indication: BIPOLAR DISORDER
     Dosage: 1MG AS REQUIRED
     Route: 048
     Dates: start: 20080727
  8. RITALIN [Suspect]
     Dosage: 10MG THREE TIMES PER DAY
     Route: 048
     Dates: start: 19930101
  9. TRAZODONE HCL [Suspect]
     Indication: INSOMNIA
     Route: 048
     Dates: start: 20080730
  10. SEROQUEL [Concomitant]
  11. ARTANE [Concomitant]

REACTIONS (2)
  - GAIT DISTURBANCE [None]
  - INTENTIONAL OVERDOSE [None]
